FAERS Safety Report 24977407 (Version 2)
Quarter: 2025Q1

REPORT INFORMATION
  Report Type: Spontaneous
  Country: IT (occurrence: IT)
  Receive Date: 20250217
  Receipt Date: 20250224
  Transmission Date: 20250408
  Serious: Yes (Life-Threatening, Hospitalization, Other)
  Sender: MYLAN
  Company Number: None

PATIENT
  Age: 26 Year
  Sex: Male

DRUGS (12)
  1. CITALOPRAM [Suspect]
     Active Substance: CITALOPRAM
     Indication: Product used for unknown indication
     Dosage: 1120 MILLIGRAM, QD (24 HOURS,THE PATIENT TOOK A TOTAL OF 1120 MG)
     Dates: start: 20220907, end: 20220907
  2. CITALOPRAM [Suspect]
     Active Substance: CITALOPRAM
     Dosage: 1120 MILLIGRAM, QD (24 HOURS,THE PATIENT TOOK A TOTAL OF 1120 MG)
     Route: 048
     Dates: start: 20220907, end: 20220907
  3. CITALOPRAM [Suspect]
     Active Substance: CITALOPRAM
     Dosage: 1120 MILLIGRAM, QD (24 HOURS,THE PATIENT TOOK A TOTAL OF 1120 MG)
     Route: 048
     Dates: start: 20220907, end: 20220907
  4. CITALOPRAM [Suspect]
     Active Substance: CITALOPRAM
     Dosage: 1120 MILLIGRAM, QD (24 HOURS,THE PATIENT TOOK A TOTAL OF 1120 MG)
     Dates: start: 20220907, end: 20220907
  5. ESCITALOPRAM [Suspect]
     Active Substance: ESCITALOPRAM OXALATE
     Indication: Product used for unknown indication
     Dosage: 960 MILLIGRAM, QD (24 HOURS, THE PATIENT TOOK A TOTAL OF 960 MG)
     Dates: start: 20220907, end: 20220907
  6. ESCITALOPRAM [Suspect]
     Active Substance: ESCITALOPRAM OXALATE
     Dosage: 960 MILLIGRAM, QD (24 HOURS, THE PATIENT TOOK A TOTAL OF 960 MG)
     Route: 048
     Dates: start: 20220907, end: 20220907
  7. ESCITALOPRAM [Suspect]
     Active Substance: ESCITALOPRAM OXALATE
     Dosage: 960 MILLIGRAM, QD (24 HOURS, THE PATIENT TOOK A TOTAL OF 960 MG)
     Route: 048
     Dates: start: 20220907, end: 20220907
  8. ESCITALOPRAM [Suspect]
     Active Substance: ESCITALOPRAM OXALATE
     Dosage: 960 MILLIGRAM, QD (24 HOURS, THE PATIENT TOOK A TOTAL OF 960 MG)
     Dates: start: 20220907, end: 20220907
  9. TAVOR (LORAZEPAM) [Suspect]
     Active Substance: LORAZEPAM
     Indication: Product used for unknown indication
     Dosage: 60 MILLIGRAM, QD (24 HOURS, THE PATIENT TOOK A TOTAL OF 60 MG OF TAVOR)
     Dates: start: 20220907, end: 20220907
  10. TAVOR (LORAZEPAM) [Suspect]
     Active Substance: LORAZEPAM
     Dosage: 60 MILLIGRAM, QD (24 HOURS, THE PATIENT TOOK A TOTAL OF 60 MG OF TAVOR)
     Route: 048
     Dates: start: 20220907, end: 20220907
  11. TAVOR (LORAZEPAM) [Suspect]
     Active Substance: LORAZEPAM
     Dosage: 60 MILLIGRAM, QD (24 HOURS, THE PATIENT TOOK A TOTAL OF 60 MG OF TAVOR)
     Route: 048
     Dates: start: 20220907, end: 20220907
  12. TAVOR (LORAZEPAM) [Suspect]
     Active Substance: LORAZEPAM
     Dosage: 60 MILLIGRAM, QD (24 HOURS, THE PATIENT TOOK A TOTAL OF 60 MG OF TAVOR)
     Dates: start: 20220907, end: 20220907

REACTIONS (3)
  - Drug abuse [Recovered/Resolved]
  - Intentional self-injury [Recovered/Resolved]
  - Sopor [Recovered/Resolved]

NARRATIVE: CASE EVENT DATE: 20220907
